FAERS Safety Report 7409567-2 (Version None)
Quarter: 2011Q2

REPORT INFORMATION
  Report Type: 
  Country: None (occurrence: None)
  Receive Date: 20110412
  Receipt Date: 20110405
  Transmission Date: 20111010
  Serious: Yes (Hospitalization)
  Sender: FDA-Public Use
  Company Number: US-BRISTOL-MYERS SQUIBB COMPANY-15648942

PATIENT
  Age: 69 Year
  Sex: Male

DRUGS (12)
  1. ZOCOR [Concomitant]
     Dates: start: 20090115
  2. FISH OIL [Concomitant]
     Dates: start: 20070628
  3. ADVAIR DISKUS 100/50 [Concomitant]
     Dates: start: 20100603
  4. ASPIRIN [Concomitant]
     Dates: start: 20091015
  5. PRILOSEC [Concomitant]
     Dosage: OTC
     Dates: start: 20040330
  6. SOTALOL HCL [Concomitant]
     Dates: start: 20020501
  7. LYRICA [Concomitant]
     Dates: start: 20080930
  8. HYDROCHLOROTHIAZIDE [Concomitant]
     Dates: start: 20091227
  9. FLOMAX [Concomitant]
     Dates: start: 20110204
  10. ALBUTEROL [Concomitant]
     Dates: start: 20100310
  11. ABATACEPT [Suspect]
     Dosage: INTERRUPTED ON 22MAR11
     Route: 058
     Dates: start: 20081216
  12. LISINOPRIL [Concomitant]
     Dates: start: 20090316

REACTIONS (1)
  - COLONIC FISTULA [None]
